FAERS Safety Report 10207080 (Version 1)
Quarter: 2014Q2

REPORT INFORMATION
  Report Type: Spontaneous
  Country: US (occurrence: US)
  Receive Date: 20140530
  Receipt Date: 20140530
  Transmission Date: 20141212
  Serious: Yes (Hospitalization)
  Sender: FDA-Public Use
  Company Number: US-SA-2014SA068168

PATIENT
  Age: 93 Year
  Sex: Female

DRUGS (2)
  1. MULTAQ [Suspect]
     Indication: ARRHYTHMIA
     Route: 048
     Dates: end: 201403
  2. MULTAQ [Suspect]
     Indication: ARRHYTHMIA
     Route: 048
     Dates: start: 201405

REACTIONS (2)
  - Pneumonia [Recovered/Resolved]
  - Myocardial infarction [Recovered/Resolved]
